FAERS Safety Report 6359803-9 (Version None)
Quarter: 2009Q3

REPORT INFORMATION
  Report Type: 
  Country: None (occurrence: None)
  Receive Date: 20090917
  Receipt Date: 20090910
  Transmission Date: 20100115
  Serious: Yes (Other)
  Sender: FDA-Public Use
  Company Number: A0793185A

PATIENT
  Sex: Male
  Weight: 77 kg

DRUGS (3)
  1. KIVEXA [Suspect]
     Dosage: 1TAB PER DAY
     Route: 065
     Dates: start: 20090515, end: 20090527
  2. REYATAZ [Concomitant]
     Dosage: 300MG PER DAY
     Route: 065
     Dates: start: 20090505, end: 20090527
  3. RITONAVIR [Concomitant]
     Dosage: 100MG PER DAY
     Route: 065
     Dates: start: 20090515, end: 20090527

REACTIONS (4)
  - PRURITUS [None]
  - RASH [None]
  - RASH MORBILLIFORM [None]
  - TRANSMISSION OF AN INFECTIOUS AGENT VIA A MEDICINAL PRODUCT [None]
